FAERS Safety Report 8545814-1 (Version None)
Quarter: 2012Q3

REPORT INFORMATION
  Report Type: 
  Country: None (occurrence: None)
  Receive Date: 20120727
  Receipt Date: 20120718
  Transmission Date: 20120928
  Serious: Yes (Other)
  Sender: FDA-Public Use
  Company Number: JP-ALLERGAN-1210164US

PATIENT
  Age: 76 Year
  Sex: Female

DRUGS (1)
  1. BOTOX [Suspect]
     Indication: MULTIPLE SYSTEM ATROPHY
     Dosage: 250 UNITS, SINGLE
     Route: 030
     Dates: start: 20120530, end: 20120530

REACTIONS (3)
  - OXYGEN SATURATION DECREASED [None]
  - PYREXIA [None]
  - URINE OUTPUT DECREASED [None]
